FAERS Safety Report 21139889 (Version 1)
Quarter: 2022Q3

REPORT INFORMATION
  Report Type: Spontaneous
  Country: FR (occurrence: FR)
  Receive Date: 20220728
  Receipt Date: 20220728
  Transmission Date: 20221026
  Serious: Yes (Other)
  Sender: FDA-Public Use
  Company Number: FR-JNJFOC-20220743166

PATIENT
  Sex: Male

DRUGS (2)
  1. HALDOL [Suspect]
     Active Substance: HALOPERIDOL
     Indication: Mania
     Route: 048
  2. HALDOL [Suspect]
     Active Substance: HALOPERIDOL
     Indication: Mania
     Route: 048

REACTIONS (5)
  - Paralysis [Unknown]
  - Somnolence [Unknown]
  - Headache [Unknown]
  - Dizziness [Unknown]
  - Product dose omission issue [Unknown]
